FAERS Safety Report 8504115-8 (Version None)
Quarter: 2012Q3

REPORT INFORMATION
  Report Type: 
  Country: None (occurrence: None)
  Receive Date: 20120711
  Receipt Date: 20120703
  Transmission Date: 20120928
  Serious: No
  Sender: FDA-Public Use
  Company Number: US-009507513-1207USA000445

PATIENT

DRUGS (1)
  1. MAXALT [Suspect]
     Indication: MIGRAINE
     Dosage: RAPID DISSOLVE
     Route: 048

REACTIONS (1)
  - THROMBOSIS [None]
